FAERS Safety Report 16439291 (Version 1)
Quarter: 2019Q2

REPORT INFORMATION
  Report Type: Spontaneous
  Country: FR (occurrence: FR)
  Receive Date: 20190617
  Receipt Date: 20190617
  Transmission Date: 20190711
  Serious: Yes (Hospitalization, Other)
  Sender: FDA-Public Use
  Company Number: FR-BRISTOL-MYERS SQUIBB COMPANY-BMS-2019-056425

PATIENT
  Age: 55 Year
  Sex: Female
  Weight: 123 kg

DRUGS (1)
  1. OPDIVO [Suspect]
     Active Substance: NIVOLUMAB
     Indication: METASTATIC MALIGNANT MELANOMA
     Dosage: 480 MILLIGRAM, CYCLICAL
     Route: 041
     Dates: start: 20160822, end: 20190411

REACTIONS (4)
  - Generalised oedema [Recovering/Resolving]
  - Scleroderma [Recovering/Resolving]
  - Weight increased [Recovering/Resolving]
  - Eosinophilic fasciitis [Recovering/Resolving]

NARRATIVE: CASE EVENT DATE: 201902
